FAERS Safety Report 8340086-5 (Version None)
Quarter: 2012Q2

REPORT INFORMATION
  Report Type: 
  Country: None (occurrence: None)
  Receive Date: 20120507
  Receipt Date: 20090721
  Transmission Date: 20120825
  Serious: Yes (Disabling, Other)
  Sender: FDA-Public Use
  Company Number: US-TEVA-2009005567

PATIENT
  Sex: Female
  Weight: 71.732 kg

DRUGS (2)
  1. TREANDA [Suspect]
     Indication: CHRONIC LYMPHOCYTIC LEUKAEMIA
     Route: 042
     Dates: start: 20081201, end: 20090401
  2. RITUXAN [Concomitant]

REACTIONS (1)
  - HERPES ZOSTER [None]
